FAERS Safety Report 22202527 (Version 4)
Quarter: 2023Q2

REPORT INFORMATION
  Report Type: Report from Study
  Country: US (occurrence: US)
  Receive Date: 20230412
  Receipt Date: 20230630
  Transmission Date: 20230721
  Serious: Yes (Hospitalization, Other)
  Sender: FDA-Public Use
  Company Number: US-002147023-NVSC2023US084479

PATIENT
  Age: 64 Year
  Sex: Female

DRUGS (1)
  1. ENTRESTO [Suspect]
     Active Substance: SACUBITRIL\VALSARTAN
     Indication: Cardiac failure
     Dosage: 1 DOSAGE FORM, BID (49/51MG)
     Route: 048
     Dates: start: 20230309

REACTIONS (8)
  - Myocardial infarction [Not Recovered/Not Resolved]
  - Haemoglobin decreased [Recovering/Resolving]
  - Post procedural infection [Unknown]
  - Weight decreased [Unknown]
  - Fatigue [Unknown]
  - Hypoaesthesia [Unknown]
  - Pain in extremity [Unknown]
  - Urine abnormality [Unknown]

NARRATIVE: CASE EVENT DATE: 20230401
